FAERS Safety Report 17150807 (Version 3)
Quarter: 2020Q1

REPORT INFORMATION
  Report Type: Report from Study
  Country: US (occurrence: US)
  Receive Date: 20191213
  Receipt Date: 20200205
  Transmission Date: 20200409
  Serious: No
  Sender: FDA-Public Use
  Company Number: US-SA-2019SA344514

PATIENT
  Age: 17 Year
  Sex: Female

DRUGS (8)
  1. DUPILUMAB [Suspect]
     Active Substance: DUPILUMAB
     Indication: DERMATITIS ATOPIC
     Dosage: 600 MG, 1X
     Route: 058
     Dates: start: 2019, end: 2019
  2. ZYRTEC [Concomitant]
     Active Substance: CETIRIZINE HYDROCHLORIDE
  3. CHILDREN MULTIVITAMINS [Concomitant]
  4. MOMETASONE [Concomitant]
     Active Substance: MOMETASONE
  5. PROTOPIC [Concomitant]
     Active Substance: TACROLIMUS
  6. DUPILUMAB [Suspect]
     Active Substance: DUPILUMAB
     Dosage: 300 MG, QOW
     Route: 058
     Dates: start: 20191030
  7. DUPILUMAB [Suspect]
     Active Substance: DUPILUMAB
     Dosage: 300 MG, Q15D
     Route: 058
     Dates: start: 2019
  8. EUCRISA [Concomitant]
     Active Substance: CRISABOROLE

REACTIONS (5)
  - Product use issue [Unknown]
  - Rash papular [Recovering/Resolving]
  - Rash [Recovering/Resolving]
  - Dermatitis atopic [Recovering/Resolving]
  - Product use issue [Unknown]

NARRATIVE: CASE EVENT DATE: 2019
